FAERS Safety Report 5492487-0 (Version None)
Quarter: 2007Q4

REPORT INFORMATION
  Report Type: 
  Country: None (occurrence: None)
  Receive Date: 20071022
  Receipt Date: 20071015
  Transmission Date: 20080405
  Serious: Yes (Hospitalization)
  Sender: FDA-Public Use
  Company Number: AT-BOEHRINGER INGELHEIM PHARMACEUTICALS, INC.-2007-BE-00020BE

PATIENT
  Sex: Male

DRUGS (24)
  1. SIFROL -  0,35 MG - TABLETTEN [Suspect]
     Indication: PARKINSON'S DISEASE
     Route: 048
     Dates: start: 20021001, end: 20031201
  2. SIFROL -  0,35 MG - TABLETTEN [Suspect]
     Route: 048
     Dates: start: 20031201, end: 20060601
  3. MADOPAR [Suspect]
     Indication: PARKINSON'S DISEASE
     Dosage: STRENGTH: 50MG LEVODOPA/ 12,5MG BENSERAZID, TOTAL DAILY DOSE 150MG/ 37,5 MG
     Route: 048
     Dates: start: 20040101, end: 20060601
  4. SUPRESSIN [Concomitant]
  5. METOPROLOL TARTRATE [Concomitant]
     Route: 048
  6. ALNA R [Concomitant]
     Route: 048
  7. ACECOMBSEMI [Concomitant]
  8. CIPRALEX [Concomitant]
  9. FLURPAX [Concomitant]
  10. LASIX [Concomitant]
  11. KCL RET. [Concomitant]
  12. PERIDOL [Concomitant]
     Route: 048
  13. ASPIRIN [Concomitant]
  14. SEROPRAM [Concomitant]
  15. DIGIMERCK [Concomitant]
     Dosage: ON DEMAND
  16. THYREX [Concomitant]
  17. PLENDIL RET. [Concomitant]
  18. TROMCARDIN DRG. [Concomitant]
  19. PK-MERZ INFUSIONS [Concomitant]
     Route: 042
     Dates: start: 20031213, end: 20031222
  20. PK-MERZ [Concomitant]
     Dates: start: 20040101, end: 20060601
  21. LOVENOX [Concomitant]
     Indication: THROMBOSIS PROPHYLAXIS
     Route: 058
     Dates: start: 20020101, end: 20020101
  22. PANTOPRAZOLE SODIUM [Concomitant]
  23. MIANSERIN [Concomitant]
     Dates: start: 20050101
  24. LANSOPRAZOLE [Concomitant]
     Dates: start: 20060101

REACTIONS (15)
  - ABNORMAL BEHAVIOUR [None]
  - AGGRESSION [None]
  - AMNESIA [None]
  - CHOLELITHIASIS [None]
  - CONFUSIONAL STATE [None]
  - CORONARY ARTERY DISEASE [None]
  - HALLUCINATION, VISUAL [None]
  - HEPATIC STEATOSIS [None]
  - IMPULSE-CONTROL DISORDER [None]
  - MENTAL DISORDER [None]
  - OBSESSIVE-COMPULSIVE DISORDER [None]
  - OEDEMA PERIPHERAL [None]
  - PARKINSON'S DISEASE [None]
  - PATHOLOGICAL GAMBLING [None]
  - SLEEP DISORDER [None]
